FAERS Safety Report 4887688-6 (Version None)
Quarter: 2006Q1

REPORT INFORMATION
  Report Type: 
  Country: None (occurrence: None)
  Receive Date: 20060123
  Receipt Date: 20051018
  Transmission Date: 20060701
  Serious: Yes (Death, Other)
  Sender: FDA-Public Use
  Company Number: US-AVENTIS-200519220GDDC

PATIENT
  Age: 73 Year
  Sex: Male
  Weight: 80.9 kg

DRUGS (13)
  1. TAXOTERE [Suspect]
     Indication: OESOPHAGEAL CARCINOMA
     Route: 042
     Dates: start: 20050909, end: 20051007
  2. OXALIPLATIN [Suspect]
     Indication: OESOPHAGEAL CARCINOMA
     Route: 042
     Dates: start: 20050909, end: 20051007
  3. XELODA [Suspect]
     Indication: OESOPHAGEAL CARCINOMA
     Route: 048
     Dates: start: 20050909, end: 20050918
  4. XELODA [Suspect]
     Route: 048
     Dates: start: 20050930, end: 20051007
  5. VICODIN [Concomitant]
     Dosage: DOSE: 5/500 MG THREE TIMES A DAY
     Route: 048
  6. DURAGESIC-100 [Concomitant]
     Dosage: DOSE: 25 MCG TO CHES AREA
  7. COMPAZINE [Concomitant]
     Dosage: DOSE: 10 MG THREE TIMES A DAY
     Route: 048
  8. COMPAZINE [Concomitant]
     Route: 054
  9. DECADRON [Concomitant]
     Route: 048
  10. ZOFRAN [Concomitant]
     Dosage: DOSE: 4MG THREE TIMES A DAY
     Route: 048
  11. POTASSIUM CHLORIDE [Concomitant]
     Route: 048
  12. CODEINE W/GUAIFENESIN [Concomitant]
     Dosage: DOSE: 100MG/5ML (1 TEASPOON THREE TIMES A DAY)
     Route: 048
  13. PENICILLIN V POTASSIUM [Concomitant]
     Dosage: DOSE: 250MG/5ML
     Route: 048

REACTIONS (12)
  - APNOEA [None]
  - BLOOD POTASSIUM DECREASED [None]
  - BLOOD SODIUM DECREASED [None]
  - BRONCHITIS [None]
  - CARDIAC ARREST [None]
  - CHRONIC OBSTRUCTIVE PULMONARY DISEASE [None]
  - DYSPNOEA [None]
  - FATIGUE [None]
  - MYOCARDIAL INFARCTION [None]
  - OESOPHAGEAL RUPTURE [None]
  - PRODUCTIVE COUGH [None]
  - WHEEZING [None]
